FAERS Safety Report 14386231 (Version 1)
Quarter: 2018Q1

REPORT INFORMATION
  Report Type: Spontaneous
  Country: US (occurrence: US)
  Receive Date: 20180115
  Receipt Date: 20180115
  Transmission Date: 20180509
  Serious: No
  Sender: FDA-Public Use
  Company Number: US-SA-2017SA082859

PATIENT
  Age: 70 Year
  Sex: Male

DRUGS (7)
  1. FLUTAMIDE. [Concomitant]
     Active Substance: FLUTAMIDE
     Route: 065
  2. ZYTIGA [Concomitant]
     Active Substance: ABIRATERONE ACETATE
     Route: 065
  3. XTANDI [Suspect]
     Active Substance: ENZALUTAMIDE
     Indication: PROSTATE CANCER
     Route: 048
     Dates: start: 201604, end: 201604
  4. XTANDI [Suspect]
     Active Substance: ENZALUTAMIDE
     Indication: PROSTATE CANCER
     Route: 048
     Dates: start: 201702, end: 201702
  5. LUPRON [Concomitant]
     Active Substance: LEUPROLIDE ACETATE
     Route: 065
  6. BICALUTAMIDE. [Concomitant]
     Active Substance: BICALUTAMIDE
     Route: 065
  7. TAXOTERE [Suspect]
     Active Substance: DOCETAXEL
     Route: 065

REACTIONS (5)
  - Feeling abnormal [Unknown]
  - Fatigue [Recovering/Resolving]
  - Treatment noncompliance [Unknown]
  - Depressed mood [Recovered/Resolved]
  - Musculoskeletal pain [Recovering/Resolving]

NARRATIVE: CASE EVENT DATE: 20170116
